FAERS Safety Report 8987484 (Version 1)
Quarter: 2012Q4

REPORT INFORMATION
  Report Type: 
  Country: JP (occurrence: JP)
  Receive Date: 20121227
  Receipt Date: 20121227
  Transmission Date: 20130627
  Serious: Yes (Other)
  Sender: FDA-Public Use
  Company Number: JP-JNJFOC-20121208257

PATIENT
  Sex: Male

DRUGS (2)
  1. INFLIXIMAB, RECOMBINANT [Suspect]
     Indication: CROHN^S DISEASE
     Dosage: at 0,2,6 weeks after which the patients were put on maintenance dose of every 8 weeks
     Route: 042
  2. AZATHIOPRINE [Concomitant]
     Dosage: 50-100 mg
     Route: 065

REACTIONS (1)
  - Lupus-like syndrome [Unknown]
